FAERS Safety Report 9914785 (Version 1)
Quarter: 2014Q1

REPORT INFORMATION
  Report Type: Spontaneous
  Country: US (occurrence: US)
  Receive Date: 20140220
  Receipt Date: 20140220
  Transmission Date: 20141002
  Serious: Yes (Hospitalization)
  Sender: FDA-Public Use
  Company Number: US-ASTRAZENECA-2014SE10714

PATIENT
  Age: 51 Year
  Sex: Male
  Weight: 85 kg

DRUGS (1)
  1. LISINOPRIL [Suspect]
     Dosage: 27 LISINOPRIL 10-MG TABLETS (3.18 MG/KG BODY WEIGHT) OVER A PERIOD OF 3 OR FEWER DAYS
     Route: 048

REACTIONS (6)
  - Overdose [Unknown]
  - Metabolic acidosis [Recovered/Resolved]
  - Rhabdomyolysis [Recovered/Resolved]
  - Multi-organ failure [Recovered/Resolved]
  - Renal failure acute [Recovered/Resolved]
  - Hyperkalaemia [Recovered/Resolved]
